FAERS Safety Report 19574242 (Version 7)
Quarter: 2021Q4

REPORT INFORMATION
  Report Type: Spontaneous
  Country: PT (occurrence: PT)
  Receive Date: 20210719
  Receipt Date: 20211029
  Transmission Date: 20220303
  Serious: Yes (Hospitalization, Other)
  Sender: FDA-Public Use
  Company Number: PT-AUROBINDO-AUR-APL-2021-029746

PATIENT
  Age: 68 Year
  Sex: Female

DRUGS (8)
  1. PAROXETINE [Suspect]
     Active Substance: PAROXETINE
     Indication: Psychomotor hyperactivity
     Dosage: UNK, UNKNOWN
     Route: 065
  2. PAROXETINE [Suspect]
     Active Substance: PAROXETINE
     Indication: Affective disorder
  3. PIPERACILLIN AND TAZOBACTAM [Suspect]
     Active Substance: PIPERACILLIN SODIUM\TAZOBACTAM SODIUM
     Indication: Evidence based treatment
     Dosage: UNK, UNKNOWN
     Route: 065
  4. PIPERACILLIN AND TAZOBACTAM [Suspect]
     Active Substance: PIPERACILLIN SODIUM\TAZOBACTAM SODIUM
     Indication: Infection
  5. RISPERIDONE [Suspect]
     Active Substance: RISPERIDONE
     Indication: Psychomotor hyperactivity
     Dosage: UNK, UNKNOWN
     Route: 065
  6. RISPERIDONE [Suspect]
     Active Substance: RISPERIDONE
     Indication: Affective disorder
  7. METAMIZOLE [Suspect]
     Active Substance: METAMIZOLE
     Indication: Pain
     Dosage: UNK
     Route: 065
  8. METAMIZOLE [Suspect]
     Active Substance: METAMIZOLE
     Indication: Analgesic therapy

REACTIONS (3)
  - Acute generalised exanthematous pustulosis [Recovered/Resolved]
  - Drug hypersensitivity [Recovered/Resolved]
  - Product use in unapproved indication [Unknown]
